FAERS Safety Report 25072456 (Version 1)
Quarter: 2025Q1

REPORT INFORMATION
  Report Type: Spontaneous
  Country: US (occurrence: US)
  Receive Date: 20250313
  Receipt Date: 20250313
  Transmission Date: 20250409
  Serious: Yes (Other)
  Sender: COOPERSURGICAL
  Company Number: US-COOPERSURGICAL, INC.-2025CPS000608

PATIENT
  Age: 17 Year
  Sex: Female
  Weight: 55.193 kg

DRUGS (2)
  1. PARAGARD T 380A [Suspect]
     Active Substance: COPPER
     Indication: Contraception
     Route: 015
     Dates: start: 20230922, end: 20250124
  2. LEVOTHYROXINE [Concomitant]
     Active Substance: LEVOTHYROXINE

REACTIONS (7)
  - Ovarian cyst [Unknown]
  - Post procedural haemorrhage [Recovered/Resolved]
  - Abdominal pain upper [Unknown]
  - Heavy menstrual bleeding [Recovered/Resolved]
  - Pelvic pain [Unknown]
  - Device expulsion [Recovered/Resolved]
  - Off label use [Unknown]

NARRATIVE: CASE EVENT DATE: 20230922
